FAERS Safety Report 18831524 (Version 3)
Quarter: 2022Q3

REPORT INFORMATION
  Report Type: Spontaneous
  Country: CA (occurrence: CA)
  Receive Date: 20210203
  Receipt Date: 20220906
  Transmission Date: 20221026
  Serious: Yes (Hospitalization, Other)
  Sender: FDA-Public Use
  Company Number: CA-JNJFOC-20210148508

PATIENT
  Age: 28 Year
  Sex: Male
  Weight: 191 kg

DRUGS (49)
  1. RISPERDAL [Interacting]
     Active Substance: RISPERIDONE
     Indication: Schizoaffective disorder
     Route: 065
  2. RISPERDAL [Interacting]
     Active Substance: RISPERIDONE
     Route: 065
  3. RISPERDAL [Interacting]
     Active Substance: RISPERIDONE
     Route: 065
  4. RISPERDAL [Interacting]
     Active Substance: RISPERIDONE
     Route: 065
  5. RISPERDAL [Interacting]
     Active Substance: RISPERIDONE
     Route: 065
  6. RISPERDAL [Interacting]
     Active Substance: RISPERIDONE
     Route: 065
  7. OLANZAPINE [Suspect]
     Active Substance: OLANZAPINE
     Indication: Schizoaffective disorder
     Route: 065
  8. OLANZAPINE [Suspect]
     Active Substance: OLANZAPINE
     Indication: Product used for unknown indication
     Route: 065
  9. OLANZAPINE [Suspect]
     Active Substance: OLANZAPINE
     Route: 065
  10. CARBAMAZEPINE [Suspect]
     Active Substance: CARBAMAZEPINE
     Indication: Schizoaffective disorder
     Dosage: 2800 MG
     Route: 065
  11. CARBAMAZEPINE [Suspect]
     Active Substance: CARBAMAZEPINE
     Indication: Product used for unknown indication
     Route: 065
  12. PALIPERIDONE [Suspect]
     Active Substance: PALIPERIDONE
     Indication: Schizoaffective disorder
     Route: 065
  13. PALIPERIDONE [Suspect]
     Active Substance: PALIPERIDONE
     Route: 065
  14. AMLODIPINE [Concomitant]
     Active Substance: AMLODIPINE BESYLATE
     Indication: Product used for unknown indication
     Route: 065
  15. AMOXICILLIN\CLAVULANATE POTASSIUM [Concomitant]
     Active Substance: AMOXICILLIN\CLAVULANATE POTASSIUM
     Indication: Product used for unknown indication
     Route: 065
  16. ATORVASTATIN [Concomitant]
     Active Substance: ATORVASTATIN
     Indication: Product used for unknown indication
     Route: 065
  17. BENZTROPINE [Concomitant]
     Active Substance: BENZTROPINE
     Indication: Tremor
     Route: 065
  18. BENZTROPINE [Concomitant]
     Active Substance: BENZTROPINE
     Route: 065
  19. CLONAZEPAM [Concomitant]
     Active Substance: CLONAZEPAM
     Indication: Product used for unknown indication
     Route: 065
  20. CLONAZEPAM [Concomitant]
     Active Substance: CLONAZEPAM
     Route: 065
  21. CLONAZEPAM [Concomitant]
     Active Substance: CLONAZEPAM
     Route: 065
  22. CLOZAPINE [Concomitant]
     Active Substance: CLOZAPINE
     Indication: Product used for unknown indication
     Route: 065
  23. DESMOPRESSIN [Concomitant]
     Active Substance: DESMOPRESSIN
     Indication: Product used for unknown indication
     Route: 065
  24. DESMOPRESSIN [Concomitant]
     Active Substance: DESMOPRESSIN
     Route: 065
  25. DESMOPRESSIN [Concomitant]
     Active Substance: DESMOPRESSIN
     Route: 065
  26. DIAZEPAM [Concomitant]
     Active Substance: DIAZEPAM
     Indication: Product used for unknown indication
     Route: 065
  27. DIAZEPAM [Concomitant]
     Active Substance: DIAZEPAM
     Route: 065
  28. HALOPERIDOL [Concomitant]
     Active Substance: HALOPERIDOL
     Indication: Product used for unknown indication
     Route: 065
  29. LACTULOSE [Concomitant]
     Active Substance: LACTULOSE
     Indication: Product used for unknown indication
     Route: 048
  30. LACTULOSE [Concomitant]
     Active Substance: LACTULOSE
     Route: 048
  31. LEVETIRACETAM [Concomitant]
     Active Substance: LEVETIRACETAM
     Indication: Product used for unknown indication
     Route: 065
  32. LEVOTHYROXINE [Concomitant]
     Active Substance: LEVOTHYROXINE
     Indication: Product used for unknown indication
     Route: 065
  33. LEVOTHYROXINE [Concomitant]
     Active Substance: LEVOTHYROXINE
     Route: 065
  34. LITHIUM [Concomitant]
     Active Substance: LITHIUM
     Indication: Product used for unknown indication
     Dosage: 900 MG, 1200 MG AND 1500 MG
     Route: 065
  35. LITHIUM [Concomitant]
     Active Substance: LITHIUM
     Route: 065
  36. LITHIUM [Concomitant]
     Active Substance: LITHIUM
     Route: 065
  37. METOPROLOL [Concomitant]
     Active Substance: METOPROLOL
     Indication: Product used for unknown indication
     Route: 065
  38. OMEPRAZOLE [Concomitant]
     Active Substance: OMEPRAZOLE
     Indication: Product used for unknown indication
     Route: 065
  39. OMEPRAZOLE [Concomitant]
     Active Substance: OMEPRAZOLE
     Route: 065
  40. OMEPRAZOLE [Concomitant]
     Active Substance: OMEPRAZOLE
     Route: 065
  41. PERPHENAZINE [Concomitant]
     Active Substance: PERPHENAZINE
     Indication: Product used for unknown indication
     Route: 065
  42. SITAGLIPTIN [Concomitant]
     Active Substance: SITAGLIPTIN
     Indication: Product used for unknown indication
     Route: 065
  43. TEMAZEPAM [Concomitant]
     Active Substance: TEMAZEPAM
     Indication: Product used for unknown indication
     Route: 065
  44. TEMAZEPAM [Concomitant]
     Active Substance: TEMAZEPAM
     Route: 065
  45. TEMAZEPAM [Concomitant]
     Active Substance: TEMAZEPAM
     Route: 065
  46. VALPROIC ACID [Concomitant]
     Active Substance: VALPROIC ACID
     Indication: Seizure
     Route: 065
  47. ZIPRASIDONE [Concomitant]
     Active Substance: ZIPRASIDONE
     Indication: Product used for unknown indication
     Route: 065
  48. ZIPRASIDONE [Concomitant]
     Active Substance: ZIPRASIDONE
     Route: 065
  49. PROPRANOLOL [Concomitant]
     Active Substance: PROPRANOLOL HYDROCHLORIDE
     Indication: Hypertension
     Route: 065

REACTIONS (4)
  - Drug interaction [Recovered/Resolved]
  - Drug level below therapeutic [Recovered/Resolved]
  - Overdose [Recovered/Resolved]
  - Akathisia [Recovered/Resolved]
